FAERS Safety Report 25142811 (Version 1)
Quarter: 2025Q1

REPORT INFORMATION
  Report Type: Spontaneous
  Country: FR (occurrence: FR)
  Receive Date: 20250331
  Receipt Date: 20250331
  Transmission Date: 20250409
  Serious: Yes (Hospitalization)
  Sender: JOHNSON AND JOHNSON
  Company Number: None

PATIENT
  Age: 78 Year
  Sex: Male

DRUGS (5)
  1. DARZALEX [Suspect]
     Active Substance: DARATUMUMAB
     Indication: Plasma cell myeloma
     Route: 042
     Dates: start: 2022, end: 202408
  2. BORTEZOMIB [Suspect]
     Active Substance: BORTEZOMIB
     Indication: Plasma cell myeloma
     Route: 042
     Dates: start: 20241105, end: 20250121
  3. LENALIDOMIDE [Suspect]
     Active Substance: LENALIDOMIDE
     Indication: Plasma cell myeloma
     Route: 042
     Dates: start: 2022, end: 202408
  4. LENALIDOMIDE [Suspect]
     Active Substance: LENALIDOMIDE
     Route: 042
     Dates: start: 2022, end: 202408
  5. DEXAMETHASONE [Concomitant]
     Active Substance: DEXAMETHASONE
     Indication: Product used for unknown indication

REACTIONS (1)
  - Small fibre neuropathy [Not Recovered/Not Resolved]

NARRATIVE: CASE EVENT DATE: 20250101
